FAERS Safety Report 5122050-2 (Version None)
Quarter: 2006Q4

REPORT INFORMATION
  Report Type: 
  Country: None (occurrence: None)
  Receive Date: 20061004
  Receipt Date: 20061004
  Transmission Date: 20070319
  Serious: Yes (Hospitalization)
  Sender: FDA-Public Use
  Company Number: None

PATIENT
  Age: 55 Year
  Sex: Male
  Weight: 42.2 kg

DRUGS (2)
  1. LORAZEPAM [Suspect]
     Indication: RESTLESSNESS
     Dosage: 2MG   BID   PO
     Route: 048
  2. CHLORDIAZEPOXIDE [Suspect]
     Indication: ALCOHOL WITHDRAWAL SYNDROME
     Dosage: 25MG    Q6H  PRN   PO
     Route: 048

REACTIONS (19)
  - AGITATION [None]
  - ALCOHOL WITHDRAWAL SYNDROME [None]
  - COMPUTERISED TOMOGRAM ABNORMAL [None]
  - CONFUSIONAL STATE [None]
  - DEPRESSED LEVEL OF CONSCIOUSNESS [None]
  - DISORIENTATION [None]
  - DRUG HYPERSENSITIVITY [None]
  - HALLUCINATION [None]
  - INCREASED VISCOSITY OF BRONCHIAL SECRETION [None]
  - LEUKOCYTOSIS [None]
  - OVERDOSE [None]
  - PARADOXICAL DRUG REACTION [None]
  - PERIANAL ERYTHEMA [None]
  - PLEURAL DISORDER [None]
  - RESTLESSNESS [None]
  - SECRETION DISCHARGE [None]
  - SPUTUM DISCOLOURED [None]
  - TACHYCARDIA [None]
  - TACHYPNOEA [None]
